FAERS Safety Report 17484613 (Version 1)
Quarter: 2020Q1

REPORT INFORMATION
  Report Type: Spontaneous
  Country: US (occurrence: US)
  Receive Date: 20200219
  Receipt Date: 20200219
  Transmission Date: 20200409
  Serious: Yes (Hospitalization, Other)
  Sender: FDA-Public Use
  Company Number: None

PATIENT
  Age: 60 Year
  Sex: Male
  Weight: 99.34 kg

DRUGS (1)
  1. APIXABAN (APIXABAN 5MG TAB) [Suspect]
     Active Substance: APIXABAN
     Indication: ATRIAL FIBRILLATION
     Route: 048
     Dates: start: 20180822

REACTIONS (5)
  - Gastric haemorrhage [None]
  - Hypotension [None]
  - International normalised ratio abnormal [None]
  - Haemorrhage [None]
  - Confusional state [None]

NARRATIVE: CASE EVENT DATE: 20190805
